FAERS Safety Report 5960213-4 (Version None)
Quarter: 2008Q4

REPORT INFORMATION
  Report Type: 
  Country: None (occurrence: None)
  Receive Date: 20081120
  Receipt Date: 20081112
  Transmission Date: 20090506
  Serious: Yes (Hospitalization)
  Sender: FDA-Public Use
  Company Number: US-ELI_LILLY_AND_COMPANY-US200811002727

PATIENT
  Sex: Female
  Weight: 65.76 kg

DRUGS (6)
  1. BYETTA [Suspect]
     Indication: TYPE 2 DIABETES MELLITUS
     Dosage: 5 UG, 2/D
     Route: 058
     Dates: start: 20060101, end: 20060101
  2. BYETTA [Suspect]
     Dosage: 10 UG, 2/D
     Route: 058
     Dates: start: 20060101
  3. AVALIDE [Concomitant]
     Dosage: UNK, DAILY (1/D)
  4. LIPITOR [Concomitant]
     Dosage: 10 MG, UNKNOWN
  5. METFORMIN HCL [Concomitant]
     Dosage: UNK, DAILY (1/D)
  6. ANTI-DIABETICS [Concomitant]
     Dosage: UNK, DAILY (1/D)

REACTIONS (7)
  - BLOOD GLUCOSE INCREASED [None]
  - FURUNCLE [None]
  - GLYCOSYLATED HAEMOGLOBIN INCREASED [None]
  - HAND FRACTURE [None]
  - INJURY [None]
  - UTERINE LEIOMYOMA [None]
  - WEIGHT DECREASED [None]
